FAERS Safety Report 8483421-X (Version None)
Quarter: 2012Q3

REPORT INFORMATION
  Report Type: 
  Country: None (occurrence: None)
  Receive Date: 20120702
  Receipt Date: 20120625
  Transmission Date: 20120928
  Serious: Yes (Hospitalization)
  Sender: FDA-Public Use
  Company Number: FR-SANOFI-AVENTIS-2012SA045101

PATIENT
  Age: 48 Year
  Sex: Male

DRUGS (3)
  1. LOVENOX [Suspect]
     Route: 058
     Dates: start: 20120601, end: 20120607
  2. ASPIRIN [Suspect]
     Dosage: LONG STANDING
     Route: 065
  3. COUMADIN [Suspect]
     Dosage: STRENGTH: 5MG
     Route: 048
     Dates: start: 20120601

REACTIONS (1)
  - CYTOLYTIC HEPATITIS [None]
